FAERS Safety Report 9651298 (Version 1)
Quarter: 2013Q4

REPORT INFORMATION
  Report Type: Spontaneous
  Country: US (occurrence: US)
  Receive Date: 20131029
  Receipt Date: 20131029
  Transmission Date: 20140711
  Serious: No
  Sender: FDA-Public Use
  Company Number: US-BIOGENIDEC-2013BI071735

PATIENT
  Age: 67 Year
  Sex: Female

DRUGS (17)
  1. TECFIDERA [Suspect]
     Indication: MULTIPLE SCLEROSIS
     Route: 048
     Dates: start: 201305
  2. CO Q [Concomitant]
  3. LIPITOR [Concomitant]
  4. VALTREX [Concomitant]
  5. VITAMIN D [Concomitant]
  6. VITAMIN C [Concomitant]
  7. VITAMIN E [Concomitant]
  8. STOOL SOFTEN [Concomitant]
  9. CALCIUM +D [Concomitant]
     Route: 048
  10. CYMBALTA [Concomitant]
  11. SYMBICORT AER [Concomitant]
  12. XOPENEX [Concomitant]
  13. ALBUTEROL [Concomitant]
  14. BYSTOLIC [Concomitant]
  15. AMANTADINE [Concomitant]
  16. THYROID [Concomitant]
  17. COZAAR [Concomitant]

REACTIONS (3)
  - Hyperhidrosis [Not Recovered/Not Resolved]
  - Hearing impaired [Not Recovered/Not Resolved]
  - Feeling hot [Unknown]
